FAERS Safety Report 24172196 (Version 2)
Quarter: 2024Q3

REPORT INFORMATION
  Report Type: Other
  Country: US (occurrence: US)
  Receive Date: 20240805
  Receipt Date: 20240812
  Transmission Date: 20241016
  Serious: No
  Sender: INTERCEPT PHARMACEUTICALS
  Company Number: US-INTERCEPT-PM2024001524

PATIENT
  Age: 73 Year
  Sex: Female
  Weight: 69.841 kg

DRUGS (15)
  1. OCALIVA [Suspect]
     Active Substance: OBETICHOLIC ACID
     Indication: Primary biliary cholangitis
     Dosage: 5 MILLIGRAM, QD (AT NIGHT)
     Route: 048
     Dates: start: 20240712
  2. MAGNESIUM [Concomitant]
     Active Substance: MAGNESIUM
  3. VITAMIN B6 [Concomitant]
     Active Substance: PYRIDOXINE HYDROCHLORIDE
  4. HERBALS\PLANTAGO OVATA SEED COAT [Concomitant]
     Active Substance: HERBALS\PLANTAGO OVATA SEED COAT
  5. XIFAXAN [Concomitant]
     Active Substance: RIFAXIMIN
  6. LEVOTHYROXINE SODIUM [Concomitant]
     Active Substance: LEVOTHYROXINE SODIUM
  7. OZEMPIC [Concomitant]
     Active Substance: SEMAGLUTIDE
  8. EXCEDRIN EXTRA STRENGTH [Concomitant]
     Active Substance: ACETAMINOPHEN\ASPIRIN\CAFFEINE
  9. ALEVE [Concomitant]
     Active Substance: NAPROXEN SODIUM
  10. MECLIZINE HYDROCHLORIDE [Concomitant]
     Active Substance: MECLIZINE HYDROCHLORIDE
  11. CALCIUM CITRATE;COLECALCIFEROL;MAGNESIUM [Concomitant]
  12. HAIR/SKIN NAILS [Concomitant]
  13. CLARITIN [Concomitant]
     Active Substance: LORATADINE
  14. ESOMEPRAZOLE MAGNESIUM [Concomitant]
     Active Substance: ESOMEPRAZOLE MAGNESIUM
  15. TRESIBA [Concomitant]
     Active Substance: INSULIN DEGLUDEC

REACTIONS (2)
  - Blood glucose increased [Not Recovered/Not Resolved]
  - Dizziness [Recovering/Resolving]

NARRATIVE: CASE EVENT DATE: 20240701
